FAERS Safety Report 20999795 (Version 1)
Quarter: 2022Q2

REPORT INFORMATION
  Report Type: Spontaneous
  Country: US (occurrence: US)
  Receive Date: 20220623
  Receipt Date: 20220623
  Transmission Date: 20220721
  Serious: Yes (Hospitalization)
  Sender: FDA-Public Use
  Company Number: US-PARI RESPIRATORY EQUIPMENT, INC.-2022PAR00036

PATIENT
  Sex: Female

DRUGS (3)
  1. KITABIS PAK [Suspect]
     Active Substance: TOBRAMYCIN
     Indication: Chronic respiratory failure
     Dosage: 300 MG/5 ML BY NEBULIZATION, 2X/DAY 28 DAYS ON THEN 28 DAYS OFF
     Dates: start: 20200206
  2. PULMICORT TURBUHALER [Concomitant]
     Active Substance: BUDESONIDE
  3. PULMOZYME [Concomitant]
     Active Substance: DORNASE ALFA

REACTIONS (1)
  - Hospitalisation [Unknown]
